FAERS Safety Report 24699428 (Version 1)
Quarter: 2024Q4

REPORT INFORMATION
  Report Type: Spontaneous
  Country: CH (occurrence: CH)
  Receive Date: 20241205
  Receipt Date: 20241205
  Transmission Date: 20250114
  Serious: Yes (Death)
  Sender: BEIGENE
  Company Number: CH-BEIGENE-BGN-2024-019647

PATIENT

DRUGS (1)
  1. TEVIMBRA [Suspect]
     Active Substance: TISLELIZUMAB-JSGR
     Indication: Product used for unknown indication
     Dosage: UNK
     Dates: start: 202411

REACTIONS (1)
  - Death [Fatal]
